FAERS Safety Report 7435321-1 (Version None)
Quarter: 2011Q2

REPORT INFORMATION
  Report Type: 
  Country: None (occurrence: None)
  Receive Date: 20110425
  Receipt Date: 20110413
  Transmission Date: 20111010
  Serious: Yes (Hospitalization)
  Sender: FDA-Public Use
  Company Number: A0793825A

PATIENT
  Age: 59 Year
  Sex: Female

DRUGS (19)
  1. MYCOSTATIN [Concomitant]
  2. CALCIUM [Concomitant]
  3. NORVASC [Concomitant]
  4. AMICAR [Concomitant]
  5. KEPPRA [Concomitant]
  6. VALIUM [Concomitant]
  7. FOLVITE [Concomitant]
  8. LEXAPRO [Concomitant]
  9. VINCRISTINE [Concomitant]
     Indication: IDIOPATHIC THROMBOCYTOPENIC PURPURA
     Dates: start: 20090108
  10. ACETAMINOPHEN [Concomitant]
  11. XANAX [Concomitant]
  12. PROMACTA [Suspect]
     Indication: IDIOPATHIC THROMBOCYTOPENIC PURPURA
     Dosage: 75MG PER DAY
     Route: 048
     Dates: start: 20090210, end: 20090409
  13. TENORMIN [Concomitant]
  14. POTASSIUM [Concomitant]
  15. LISINOPRIL [Concomitant]
  16. ZETIA [Concomitant]
  17. PRILOSEC [Concomitant]
  18. THEO-DUR [Concomitant]
  19. IRON SULFATETHIAMIN COMPOUND TAB [Concomitant]

REACTIONS (40)
  - ASCITES [None]
  - CELLULITIS [None]
  - KNEE ARTHROPLASTY [None]
  - HAEMORRHAGE URINARY TRACT [None]
  - CONSTIPATION [None]
  - GENERALISED OEDEMA [None]
  - HYPOALBUMINAEMIA [None]
  - DRUG INEFFECTIVE [None]
  - HEPATIC CIRRHOSIS [None]
  - ANTIMITOCHONDRIAL ANTIBODY POSITIVE [None]
  - NAUSEA [None]
  - CHANGE OF BOWEL HABIT [None]
  - UROSEPSIS [None]
  - HEMIPARESIS [None]
  - EMOTIONAL DISORDER [None]
  - HEPATOCELLULAR INJURY [None]
  - DYSGEUSIA [None]
  - HAEMATURIA [None]
  - ILEUS [None]
  - ENTEROCOLITIS HAEMORRHAGIC [None]
  - SPEECH DISORDER [None]
  - HEPATIC STEATOSIS [None]
  - OBESITY [None]
  - DYSPHAGIA [None]
  - CHROMATURIA [None]
  - WEIGHT DECREASED [None]
  - HYPOTENSION [None]
  - FAECALOMA [None]
  - HYPERBILIRUBINAEMIA [None]
  - METABOLIC ACIDOSIS [None]
  - HAEMORRHOIDS [None]
  - HYPOKALAEMIA [None]
  - OCCULT BLOOD POSITIVE [None]
  - EPISTAXIS [None]
  - GINGIVAL BLEEDING [None]
  - NEUROLOGICAL SYMPTOM [None]
  - BILIARY CIRRHOSIS PRIMARY [None]
  - HYPOPHAGIA [None]
  - RETCHING [None]
  - ABDOMINAL PAIN UPPER [None]
